FAERS Safety Report 14619509 (Version 2)
Quarter: 2019Q2

REPORT INFORMATION
  Report Type: Report from Study
  Country: DE (occurrence: DE)
  Receive Date: 20180309
  Receipt Date: 20190415
  Transmission Date: 20190711
  Serious: Yes (Hospitalization)
  Sender: FDA-Public Use
  Company Number: DE-ASTRAZENECA-2018SE26564

PATIENT
  Age: 70 Year
  Sex: Female

DRUGS (6)
  1. TAXOL [Concomitant]
     Active Substance: PACLITAXEL
     Dosage: 6 CYCLES
     Route: 065
     Dates: start: 201609, end: 201701
  2. RAMIPRIL. [Concomitant]
     Active Substance: RAMIPRIL
     Route: 048
  3. OLAPARIB. [Suspect]
     Active Substance: OLAPARIB
     Indication: OVARIAN CANCER
     Route: 048
     Dates: start: 20170127, end: 20170801
  4. BEVACIZUMAB. [Suspect]
     Active Substance: BEVACIZUMAB
     Indication: OVARIAN CANCER
     Dosage: 15 MG/KG, D1, Q3W, FOR A TOTAL DURATION OF 15 MONTHS / 22 CYCLES
     Route: 042
     Dates: start: 20170127, end: 20170711
  5. AMLODIPIN [Concomitant]
     Active Substance: AMLODIPINE BESYLATE
     Dosage: 5.0MG UNKNOWN
     Route: 048
  6. CARBOPLATIN. [Concomitant]
     Active Substance: CARBOPLATIN
     Dosage: 6 CYCLES
     Route: 065
     Dates: start: 201609, end: 201701

REACTIONS (1)
  - Pneumonitis [Recovered/Resolved]

NARRATIVE: CASE EVENT DATE: 20170720
